FAERS Safety Report 9825731 (Version 1)
Quarter: 2014Q1

REPORT INFORMATION
  Report Type: Spontaneous
  Country: PK (occurrence: PK)
  Receive Date: 20140117
  Receipt Date: 20140117
  Transmission Date: 20141002
  Serious: Yes (Life-Threatening, Other)
  Sender: FDA-Public Use
  Company Number: PHHY2014PK004968

PATIENT
  Age: 9 Year
  Sex: Male

DRUGS (1)
  1. NEORAL [Suspect]
     Indication: TRANSPLANT
     Dosage: 7 MG/KG, TID
     Route: 048
     Dates: start: 20131224, end: 20140113

REACTIONS (1)
  - Transplant dysfunction [Not Recovered/Not Resolved]
